FAERS Safety Report 9276925 (Version 2)
Quarter: 2013Q2

REPORT INFORMATION
  Report Type: Spontaneous
  Country: US (occurrence: US)
  Receive Date: 20130507
  Receipt Date: 20130612
  Transmission Date: 20140414
  Serious: Yes (Other)
  Sender: FDA-Public Use
  Company Number: US-PFIZER INC-2013139060

PATIENT
  Sex: Female

DRUGS (4)
  1. LIPITOR [Suspect]
     Indication: BLOOD CHOLESTEROL
     Dosage: UNK
  2. ZOLOFT [Suspect]
     Dosage: UNK
  3. NEURONTIN [Suspect]
     Dosage: UNK
  4. PREMARIN [Suspect]
     Dosage: UNK

REACTIONS (2)
  - Cerebrovascular accident [Unknown]
  - Systemic lupus erythematosus [Unknown]
